FAERS Safety Report 12180024 (Version 1)
Quarter: 2016Q1

REPORT INFORMATION
  Report Type: Spontaneous
  Country: US (occurrence: US)
  Receive Date: 20160315
  Receipt Date: 20160315
  Transmission Date: 20160526
  Serious: No
  Sender: FDA-Public Use
  Company Number: US-PFIZER INC-2016097195

PATIENT
  Age: 58 Year
  Sex: Female
  Weight: 91 kg

DRUGS (1)
  1. ATORVASTATIN CALCIUM. [Suspect]
     Active Substance: ATORVASTATIN CALCIUM
     Indication: HYPERLIPIDAEMIA
     Dosage: 20 MG, 1X/DAY

REACTIONS (5)
  - Fatigue [Recovered/Resolved]
  - Chest pain [Recovered/Resolved]
  - Liver function test abnormal [Unknown]
  - Lipids abnormal [Unknown]
  - Myalgia [Recovered/Resolved]
